FAERS Safety Report 9856643 (Version 2)
Quarter: 2014Q1

REPORT INFORMATION
  Report Type: Spontaneous
  Country: US (occurrence: US)
  Receive Date: 20140130
  Receipt Date: 20140130
  Transmission Date: 20141002
  Serious: Yes (Hospitalization)
  Sender: FDA-Public Use
  Company Number: US-GLAXOSMITHKLINE-A0802622A

PATIENT
  Age: 54 Year
  Sex: Male
  Weight: 89.5 kg

DRUGS (1)
  1. AVANDIA [Suspect]
     Indication: DIABETES MELLITUS
     Dosage: 4MG TWICE PER DAY
     Route: 048
     Dates: start: 200702, end: 200707

REACTIONS (3)
  - Acute myocardial infarction [Unknown]
  - Acute coronary syndrome [Unknown]
  - Disability [Unknown]
